FAERS Safety Report 5811984-9 (Version None)
Quarter: 2008Q3

REPORT INFORMATION
  Report Type: 
  Country: None (occurrence: None)
  Receive Date: 20080714
  Receipt Date: 20080620
  Transmission Date: 20090109
  Serious: Yes (Death)
  Sender: FDA-Public Use
  Company Number: FABR-1000283

PATIENT
  Age: 59 Year
  Sex: Male
  Weight: 83 kg

DRUGS (1)
  1. FABRAZYME [Suspect]
     Indication: FABRY'S DISEASE
     Dosage: INTRAVENOUS
     Route: 042
     Dates: start: 20080401

REACTIONS (1)
  - CHEST PAIN [None]
